FAERS Safety Report 4828227-5 (Version None)
Quarter: 2005Q4

REPORT INFORMATION
  Report Type: 
  Country: None (occurrence: None)
  Receive Date: 20051115
  Receipt Date: 20041228
  Transmission Date: 20060501
  Serious: No
  Sender: FDA-Public Use
  Company Number: US-BRISTOL-MYERS SQUIBB COMPANY-12808127

PATIENT
  Age: 40 Year
  Sex: Male
  Weight: 73 kg

DRUGS (2)
  1. SUSTIVA [Suspect]
     Indication: HIV INFECTION
     Route: 048
     Dates: start: 20040101
  2. TRUVADA [Concomitant]
     Indication: HIV INFECTION
     Dates: start: 20040101

REACTIONS (1)
  - DRUG SCREEN POSITIVE [None]
